FAERS Safety Report 9654680 (Version 1)
Quarter: 2013Q4

REPORT INFORMATION
  Report Type: Spontaneous
  Country: TN (occurrence: None)
  Receive Date: 20131028
  Receipt Date: 20131028
  Transmission Date: 20140711
  Serious: Yes (Death, Hospitalization)
  Sender: FDA-Public Use
  Company Number: FK201304746

PATIENT
  Age: 32 Year
  Sex: Female

DRUGS (1)
  1. METHOTREXATE [Suspect]
     Indication: ECTOPIC PREGNANCY

REACTIONS (18)
  - Multi-organ disorder [None]
  - Toxicity to various agents [None]
  - Mucosal inflammation [None]
  - Dysphagia [None]
  - Odynophagia [None]
  - Pyrexia [None]
  - Erythema [None]
  - Skin hyperpigmentation [None]
  - Skin lesion [None]
  - Renal failure [None]
  - Pancytopenia [None]
  - Hepatocellular injury [None]
  - Cholestasis [None]
  - C-reactive protein increased [None]
  - Diarrhoea haemorrhagic [None]
  - Bone marrow failure [None]
  - Septic shock [None]
  - Maternal exposure during pregnancy [None]
